FAERS Safety Report 14805597 (Version 6)
Quarter: 2018Q2

REPORT INFORMATION
  Report Type: Report from Study
  Country: NO (occurrence: NO)
  Receive Date: 20180425
  Receipt Date: 20180608
  Transmission Date: 20180711
  Serious: Yes (Hospitalization)
  Sender: FDA-Public Use
  Company Number: PHHO2018NO004798

PATIENT
  Age: 53 Year
  Sex: Male
  Weight: 63 kg

DRUGS (6)
  1. LBH589 [Suspect]
     Active Substance: PANOBINOSTAT
     Indication: PLASMA CELL MYELOMA
     Dosage: 20 MG, BIW
     Route: 048
     Dates: start: 20180226
  2. BORTEZOMIB [Suspect]
     Active Substance: BORTEZOMIB
     Indication: PLASMA CELL MYELOMA
     Dosage: 2 MG, BIW
     Route: 058
     Dates: start: 20180226
  3. MINIFOM [Concomitant]
     Indication: FLATULENCE
     Dosage: OT
     Route: 048
     Dates: start: 20180326, end: 20180326
  4. DEXAMETHASONE. [Suspect]
     Active Substance: DEXAMETHASONE
     Indication: PLASMA CELL MYELOMA
     Dosage: 20 MG, OT
     Route: 048
     Dates: start: 20180226
  5. DOLCONTIN [Concomitant]
     Active Substance: MORPHINE
     Indication: TUMOUR PAIN
     Dosage: 10 MG, BID
     Route: 048
     Dates: start: 2015
  6. MOVICOL [Concomitant]
     Active Substance: POLYETHYLENE GLYCOL 3350\POTASSIUM CHLORIDE\SODIUM BICARBONATE\SODIUM CHLORIDE
     Indication: FLATULENCE
     Dosage: OT
     Route: 048
     Dates: start: 20180326, end: 20180326

REACTIONS (4)
  - Constipation [Recovered/Resolved]
  - Streptococcal sepsis [Recovered/Resolved]
  - Vomiting [Recovered/Resolved]
  - Diarrhoea [Recovered/Resolved]

NARRATIVE: CASE EVENT DATE: 20180327
